FAERS Safety Report 21907414 (Version 1)
Quarter: 2023Q1

REPORT INFORMATION
  Report Type: Spontaneous
  Country: US (occurrence: US)
  Receive Date: 20230125
  Receipt Date: 20230125
  Transmission Date: 20230417
  Serious: No
  Sender: FDA-Public Use
  Company Number: US-GLAXOSMITHKLINE-USCH2023003421

PATIENT

DRUGS (1)
  1. TRANSDERM SCOP [Suspect]
     Active Substance: SCOPOLAMINE
     Indication: Product used for unknown indication
     Dosage: UNK

REACTIONS (5)
  - Hypersensitivity [Unknown]
  - Application site erythema [Unknown]
  - Application site rash [Unknown]
  - Urticaria [Unknown]
  - Condition aggravated [Unknown]
